FAERS Safety Report 7824329-X (Version None)
Quarter: 2011Q4

REPORT INFORMATION
  Report Type: 
  Country: None (occurrence: None)
  Receive Date: 20111019
  Receipt Date: 20110707
  Transmission Date: 20120403
  Serious: Yes (Hospitalization)
  Sender: FDA-Public Use
  Company Number: US-BAYER-2011-030480

PATIENT
  Sex: Male

DRUGS (4)
  1. NEXAVAR [Suspect]
     Indication: HEPATIC NEOPLASM MALIGNANT
     Dosage: 400 MG, BID
     Route: 048
     Dates: start: 20110321, end: 20110405
  2. NEXAVAR [Suspect]
     Dosage: 200 MG, QD
     Route: 048
     Dates: start: 20110401
  3. NEXAVAR [Suspect]
     Dosage: 200 MG, BID
     Dates: start: 20110407, end: 20110408
  4. NEXAVAR [Suspect]
     Dosage: 400 MG, BID
     Dates: start: 20110409

REACTIONS (9)
  - DYSPNOEA [None]
  - TONGUE DISORDER [None]
  - TOOTHACHE [None]
  - DECREASED APPETITE [None]
  - ASTHENIA [None]
  - IMMUNE SYSTEM DISORDER [None]
  - PYREXIA [None]
  - FATIGUE [None]
  - ORAL PAIN [None]
